FAERS Safety Report 6795224-2 (Version None)
Quarter: 2010Q2

REPORT INFORMATION
  Report Type: 
  Country: None (occurrence: None)
  Receive Date: 20100625
  Receipt Date: 20100617
  Transmission Date: 20101027
  Serious: Yes (Other)
  Sender: FDA-Public Use
  Company Number: US-SANOFI-AVENTIS-2010SA035612

PATIENT
  Age: 39 Year
  Sex: Female

DRUGS (2)
  1. AMBIEN [Suspect]
     Route: 048
  2. ALCOHOL [Suspect]
     Dosage: HAD FIVE TO SIX MIXED DRINKS PRIOR TO TAKING THE ZOLPIDEM
     Route: 048

REACTIONS (2)
  - FEELING ABNORMAL [None]
  - VICTIM OF SEXUAL ABUSE [None]
